FAERS Safety Report 5629237-0 (Version None)
Quarter: 2008Q1

REPORT INFORMATION
  Report Type: 
  Country: None (occurrence: None)
  Receive Date: 20080217
  Receipt Date: 20080213
  Transmission Date: 20080703
  Serious: Yes (Hospitalization)
  Sender: FDA-Public Use
  Company Number: US-BAXTER-2008BH001340

PATIENT
  Age: 76 Year
  Sex: Female
  Weight: 83 kg

DRUGS (5)
  1. HEPARIN SODIUM [Suspect]
     Indication: HAEMODIALYSIS
     Route: 041
     Dates: start: 20080101
  2. HEPARIN SODIUM [Suspect]
     Dosage: DOSE UNIT:UNKNOWN
     Route: 010
     Dates: start: 20080101
  3. BLOOD PRESSURE MEDICATIONS [Concomitant]
     Indication: BLOOD PRESSURE
     Route: 065
  4. DIABETES MELLITUS MEDICATIONS [Concomitant]
     Indication: DIABETES MELLITUS
     Route: 065
  5. FOSLO [Concomitant]
     Route: 065

REACTIONS (5)
  - BLOOD PRESSURE DECREASED [None]
  - CONSTIPATION [None]
  - ECCHYMOSIS [None]
  - HAEMORRHAGE [None]
  - HAEMORRHOIDAL HAEMORRHAGE [None]
